FAERS Safety Report 5227507-1 (Version None)
Quarter: 2007Q1

REPORT INFORMATION
  Report Type: 
  Country: None (occurrence: None)
  Receive Date: 20070202
  Receipt Date: 20070123
  Transmission Date: 20070707
  Serious: Yes (Life-Threatening, Other)
  Sender: FDA-Public Use
  Company Number: US-SANOFI-SYNTHELABO-A03200700789

PATIENT
  Age: 75 Year
  Sex: Male

DRUGS (2)
  1. WARFARIN SODIUM [Concomitant]
     Dosage: UNK
     Route: 048
  2. PLAVIX [Suspect]
     Indication: CORONARY ARTERIAL STENT INSERTION
     Dosage: UNK
     Route: 048

REACTIONS (3)
  - APHASIA [None]
  - CARDIOGENIC SHOCK [None]
  - HAEMORRHAGE INTRACRANIAL [None]
